FAERS Safety Report 9298629 (Version 1)
Quarter: 2013Q2

REPORT INFORMATION
  Report Type: Report from Study
  Country: US (occurrence: US)
  Receive Date: 20130520
  Receipt Date: 20130520
  Transmission Date: 20140414
  Serious: No
  Sender: FDA-Public Use
  Company Number: US-VERTEX PHARMACEUTICALS INC-2013-006156

PATIENT
  Age: 49 Year
  Sex: Male
  Weight: 91 kg

DRUGS (15)
  1. VX-770 [Suspect]
     Indication: HEPATITIS C
     Dosage: 150 MG, BID
     Route: 048
  2. CLOTRIMAZOLE [Concomitant]
     Dosage: UNK MG, UNK
  3. HUMALOG [Concomitant]
  4. SINGULAIR [Concomitant]
  5. CODEINE SULFATE [Concomitant]
  6. LISINOPRIL [Concomitant]
  7. OMEPRAZOLE [Concomitant]
  8. AZITHROMYCIN [Concomitant]
  9. FLONASE [Concomitant]
  10. FLOVENT [Concomitant]
  11. ALBUTEROL [Concomitant]
  12. BACTRIM [Concomitant]
  13. ZENPEP [Concomitant]
  14. CAYSTON [Concomitant]
  15. HYPERTONIC SALINE SOLUTION [Concomitant]

REACTIONS (2)
  - Cough [Unknown]
  - Sinus disorder [Unknown]
